FAERS Safety Report 8361011-7 (Version None)
Quarter: 2012Q2

REPORT INFORMATION
  Report Type: 
  Country: None (occurrence: None)
  Receive Date: 20120515
  Receipt Date: 20120504
  Transmission Date: 20120825
  Serious: Yes (Death, Hospitalization)
  Sender: FDA-Public Use
  Company Number: FR-ROCHE-785520

PATIENT
  Sex: Female
  Weight: 55 kg

DRUGS (3)
  1. FLUDARABINE PHOSPHATE [Suspect]
     Indication: CHRONIC LYMPHOCYTIC LEUKAEMIA
     Dosage: DRUG NAME GIVEN AS FLUDARABIN TEVA 25 MG/ML
     Route: 065
     Dates: start: 20101109, end: 20110328
  2. CYCLOPHOSPHAMIDE [Suspect]
     Indication: CHRONIC LYMPHOCYTIC LEUKAEMIA
     Dosage: FREQUENCY GIVEN AS:DAY2, DAY 3 AND DAY 4 OF EACH CYCLE
     Route: 065
     Dates: start: 20101109, end: 20110328
  3. MABTHERA [Suspect]
     Indication: CHRONIC LYMPHOCYTIC LEUKAEMIA
     Dosage: FREQUENCY:DAY 1 OF EACH CYCLE
     Route: 042
     Dates: start: 20101108, end: 20110328

REACTIONS (1)
  - PANCYTOPENIA [None]
